FAERS Safety Report 24334349 (Version 1)
Quarter: 2024Q3

REPORT INFORMATION
  Report Type: Spontaneous
  Country: ES (occurrence: ES)
  Receive Date: 20240918
  Receipt Date: 20240918
  Transmission Date: 20241017
  Serious: Yes (Hospitalization)
  Sender: TEVA
  Company Number: None

PATIENT
  Age: 75 Year
  Sex: Male

DRUGS (5)
  1. CIPROFLOXACIN [Suspect]
     Active Substance: CIPROFLOXACIN
     Indication: Pneumonia
     Dosage: DOSAGE UNKNOWN, CIPROFLOXACIN (2049A)
     Route: 065
     Dates: start: 20240608, end: 20240610
  2. AMOXICILLIN\CLAVULANATE POTASSIUM [Suspect]
     Active Substance: AMOXICILLIN\CLAVULANATE POTASSIUM
     Indication: Pneumonia
     Dosage: DOSAGE NOT INDICATED
     Route: 065
     Dates: start: 20240525, end: 20240606
  3. ATORVASTATIN [Suspect]
     Active Substance: ATORVASTATIN
     Indication: Infarction
     Dosage: ATORVASTATIN (7400A)
     Route: 048
     Dates: start: 20240604, end: 20240626
  4. SINTROM [Concomitant]
     Active Substance: ACENOCOUMAROL
     Indication: Product used for unknown indication
     Dosage: ACCORDING TO THE GUIDELINES PRESCRIBED BY HEMATOLOGY
     Route: 048
     Dates: start: 20240607
  5. PIPERACILLIN SODIUM\TAZOBACTAM SODIUM [Suspect]
     Active Substance: PIPERACILLIN SODIUM\TAZOBACTAM SODIUM
     Indication: Pneumonia
     Dosage: DOSAGE NOT INDICATED
     Route: 065
     Dates: start: 20240610

REACTIONS (1)
  - Hypertransaminasaemia [Recovered/Resolved]

NARRATIVE: CASE EVENT DATE: 20240614
